FAERS Safety Report 10190825 (Version 1)
Quarter: 2014Q2

REPORT INFORMATION
  Report Type: Spontaneous
  Country: DE (occurrence: DE)
  Receive Date: 20140523
  Receipt Date: 20140523
  Transmission Date: 20141212
  Serious: Yes (Hospitalization)
  Sender: FDA-Public Use
  Company Number: DE-BRISTOL-MYERS SQUIBB COMPANY-20751947

PATIENT
  Age: 61 Year
  Sex: Male
  Weight: 109 kg

DRUGS (8)
  1. FORXIGA [Suspect]
     Dosage: CUMULATIVE DOSE: 40MG
     Route: 048
     Dates: start: 20140124, end: 20140128
  2. JANUMET [Suspect]
     Indication: DIABETES MELLITUS
     Dosage: 50/1000 ?ONGOING
     Route: 048
     Dates: start: 20130528
  3. RAMIPRIL + HCTZ [Concomitant]
     Indication: HYPERTENSION
     Dosage: 1DF = 10/5 UNIT NOS?ONGOING
     Route: 048
     Dates: start: 20100430
  4. AMLODIPINE [Concomitant]
     Indication: HYPERTENSION
     Dosage: CUMULATIVE DOSE-6845 MG?ONGOING
     Route: 048
     Dates: start: 20100430
  5. NEBIVOLOL [Concomitant]
     Indication: HYPERTENSION
     Dosage: ONGOING
     Route: 048
     Dates: start: 20100430
  6. PREDNISOLONE [Concomitant]
     Indication: PSORIATIC ARTHROPATHY
     Dosage: CUMULATIVE DOSE-1225 MG?ONGOING
     Route: 048
     Dates: start: 20130528
  7. METHOTREXATE [Concomitant]
     Indication: PSORIATIC ARTHROPATHY
     Route: 058
     Dates: start: 20130528
  8. FOLIC ACID [Concomitant]
     Indication: PSORIATIC ARTHROPATHY
     Route: 048
     Dates: start: 20130528

REACTIONS (4)
  - Urosepsis [Recovering/Resolving]
  - Pyrexia [Recovering/Resolving]
  - Strangury [Recovering/Resolving]
  - Hyperglycaemia [Recovering/Resolving]
